FAERS Safety Report 6827187-5 (Version None)
Quarter: 2010Q3

REPORT INFORMATION
  Report Type: 
  Country: None (occurrence: None)
  Receive Date: 20100709
  Receipt Date: 20100629
  Transmission Date: 20110219
  Serious: Yes (Hospitalization)
  Sender: FDA-Public Use
  Company Number: US-ELI_LILLY_AND_COMPANY-US201006008039

PATIENT
  Age: 70 Year
  Sex: Male

DRUGS (7)
  1. ALIMTA [Suspect]
     Indication: LUNG ADENOCARCINOMA
     Dosage: 50 MG/M2, UNK
  2. ALIMTA [Suspect]
     Dosage: 50 MG/M2, UNK
  3. CARBOPLATIN [Concomitant]
     Indication: ADENOCARCINOMA
     Dosage: 5 UNK, UNK
  4. CARBOPLATIN [Concomitant]
     Dosage: 4.5 D/F, UNK
  5. FOLIC ACID [Concomitant]
  6. VITAMIN B-12 [Concomitant]
  7. OXYCODONE HCL [Concomitant]

REACTIONS (5)
  - DEHYDRATION [None]
  - DIARRHOEA [None]
  - FATIGUE [None]
  - PANCYTOPENIA [None]
  - RENAL FAILURE [None]
